FAERS Safety Report 8611352-0 (Version None)
Quarter: 2012Q3

REPORT INFORMATION
  Report Type: 
  Country: None (occurrence: None)
  Receive Date: 20120822
  Receipt Date: 20120724
  Transmission Date: 20120928
  Serious: Yes (Hospitalization)
  Sender: FDA-Public Use
  Company Number: GB-BAYER-2012-081578

PATIENT
  Age: 19 Year
  Sex: Female

DRUGS (8)
  1. ATORVASTATIN [Suspect]
     Indication: HYPERTRIGLYCERIDAEMIA
     Dosage: DAILY DOSE 40 MG
  2. INSULIN [Suspect]
     Dosage: 20 UNITS/H
  3. BETAMETHASONE [Suspect]
     Indication: MATERNAL THERAPY TO ENHANCE FOETAL LUNG MATURITY
  4. FOLIC ACID [Suspect]
     Dosage: DAILY DOSE 5 MG
  5. ASPIRIN [Suspect]
     Dosage: DAILY DOSE 75 MG
  6. INSULIN [Suspect]
     Indication: DIABETES MELLITUS
     Route: 058
  7. INSULIN [Suspect]
     Dosage: 5 U/KG PER DAY
     Route: 042
  8. FENOFIBRATE [Suspect]
     Indication: HYPERTRIGLYCERIDAEMIA
     Dosage: 200 MG, UNK

REACTIONS (4)
  - HYPERTRIGLYCERIDAEMIA [None]
  - PREMATURE DELIVERY [None]
  - PANCREATITIS ACUTE [None]
  - GLYCOSYLATED HAEMOGLOBIN INCREASED [None]
